FAERS Safety Report 12995410 (Version 1)
Quarter: 2016Q4

REPORT INFORMATION
  Report Type: Spontaneous
  Country: US (occurrence: US)
  Receive Date: 20161202
  Receipt Date: 20161202
  Transmission Date: 20170207
  Serious: Yes (Other)
  Sender: FDA-Public Use
  Company Number: US-BRISTOL-MYERS SQUIBB COMPANY-BMS-2016-099947

PATIENT
  Sex: Female

DRUGS (1)
  1. ELIQUIS [Suspect]
     Active Substance: APIXABAN
     Indication: DEEP VEIN THROMBOSIS
     Dosage: 5 MG, BID
     Route: 048
     Dates: start: 2010

REACTIONS (7)
  - Contusion [Unknown]
  - Bleeding time prolonged [Recovering/Resolving]
  - Traumatic haemorrhage [Recovering/Resolving]
  - Haemoptysis [Recovering/Resolving]
  - Bone disorder [Unknown]
  - Epistaxis [Recovering/Resolving]
  - Feeling abnormal [Unknown]
